FAERS Safety Report 8899823 (Version 1)
Quarter: 2012Q4

REPORT INFORMATION
  Report Type: 
  Country: EC (occurrence: EC)
  Receive Date: 20121109
  Receipt Date: 20121109
  Transmission Date: 20130627
  Serious: Yes (Death)
  Sender: FDA-Public Use
  Company Number: PHHY2012EC102952

PATIENT
  Age: 99 Year
  Sex: Female

DRUGS (1)
  1. DIOVAN HCT [Suspect]
     Indication: HYPERTENSION
     Dosage: 1 DF (160/12.5 mg), daily
     Route: 048
     Dates: start: 20111028

REACTIONS (3)
  - Respiratory arrest [Fatal]
  - Tracheal obstruction [Fatal]
  - Feeling abnormal [Unknown]
